FAERS Safety Report 11434509 (Version 1)
Quarter: 2015Q3

REPORT INFORMATION
  Report Type: Spontaneous
  Country: US (occurrence: US)
  Receive Date: 20150831
  Receipt Date: 20150831
  Transmission Date: 20151125
  Serious: Yes (Other)
  Sender: FDA-Public Use
  Company Number: US-JNJFOC-20150816336

PATIENT
  Age: 52 Year
  Sex: Female
  Weight: 65.77 kg

DRUGS (4)
  1. ESTROGEN PATCH (NOS) [Concomitant]
     Indication: OSTEOPOROSIS
     Route: 062
     Dates: start: 2014
  2. RESTASIS [Concomitant]
     Active Substance: CYCLOSPORINE
     Indication: DRY EYE
     Route: 047
     Dates: start: 2015
  3. SIMPONI [Suspect]
     Active Substance: GOLIMUMAB
     Indication: COLITIS ULCERATIVE
     Route: 058
     Dates: start: 201506
  4. SIMPONI [Suspect]
     Active Substance: GOLIMUMAB
     Indication: CROHN^S DISEASE
     Route: 058
     Dates: start: 201506

REACTIONS (4)
  - Procedural pain [Not Recovered/Not Resolved]
  - Glaucoma [Unknown]
  - Ocular hyperaemia [Not Recovered/Not Resolved]
  - Product use issue [Unknown]

NARRATIVE: CASE EVENT DATE: 201506
